FAERS Safety Report 8187612 (Version 5)
Quarter: 2012Q4

REPORT INFORMATION
  Report Type: Report from Study
  Country: NO (occurrence: NO)
  Receive Date: 20111018
  Receipt Date: 20121011
  Transmission Date: 20130627
  Serious: Yes (Death, Life-Threatening, Hospitalization)
  Sender: FDA-Public Use
  Company Number: NO-CELGENEUS-122-CCAZA-11101397

PATIENT
  Age: 66 Year
  Sex: Male
  Weight: 67 kg

DRUGS (4)
  1. AZACITIDINE INJECTABLE [Suspect]
     Indication: MYELODYSPLASTIC SYNDROME
     Dosage: 137mg
     Route: 058
     Dates: start: 20110822
  2. AZACITIDINE INJECTABLE [Suspect]
     Dosage: 137mg
     Route: 058
     Dates: start: 20110919, end: 20110923
  3. NEUPOGEN [Concomitant]
     Indication: NEUTROPENIA
     Dosage: 300 Microgram
     Route: 065
     Dates: start: 2008, end: 20111010
  4. ONDANSETRON [Concomitant]
     Indication: PROPHYLAXIS
     Route: 065
     Dates: start: 20110822

REACTIONS (2)
  - Escherichia sepsis [Not Recovered/Not Resolved]
  - Febrile neutropenia [Fatal]
